FAERS Safety Report 6733016-0 (Version None)
Quarter: 2010Q2

REPORT INFORMATION
  Report Type: 
  Country: None (occurrence: None)
  Receive Date: 20100517
  Receipt Date: 20100511
  Transmission Date: 20101027
  Serious: Yes (Death)
  Sender: FDA-Public Use
  Company Number: 2010JP002734

PATIENT
  Age: 1 Year
  Sex: Male

DRUGS (2)
  1. PROGRAF [Suspect]
     Indication: STEM CELL TRANSPLANT
  2. METHOTREXATE [Concomitant]

REACTIONS (2)
  - SEPTIC SHOCK [None]
  - STAPHYLOCOCCAL INFECTION [None]
